FAERS Safety Report 16138992 (Version 1)
Quarter: 2019Q1

REPORT INFORMATION
  Report Type: Spontaneous
  Country: US (occurrence: US)
  Receive Date: 20190330
  Receipt Date: 20190330
  Transmission Date: 20190418
  Serious: No
  Sender: FDA-Public Use
  Company Number: US-GLAXOSMITHKLINE-US2019054368

PATIENT
  Age: 5 Year
  Sex: Male

DRUGS (1)
  1. FLONASE [Suspect]
     Active Substance: FLUTICASONE PROPIONATE
     Indication: COUGH
     Dosage: UNK
     Dates: start: 201903

REACTIONS (9)
  - Cough [Unknown]
  - Condition aggravated [Unknown]
  - Vomiting [Unknown]
  - Headache [Unknown]
  - Swelling face [Unknown]
  - Nasal oedema [Unknown]
  - Product use in unapproved indication [Unknown]
  - Eye swelling [Unknown]
  - Product use issue [Unknown]

NARRATIVE: CASE EVENT DATE: 20190323
